FAERS Safety Report 5454590-0 (Version None)
Quarter: 2007Q3

REPORT INFORMATION
  Report Type: 
  Country: None (occurrence: None)
  Receive Date: 20070917
  Receipt Date: 20070228
  Transmission Date: 20080115
  Serious: Yes (Other)
  Sender: FDA-Public Use
  Company Number: US-ASTRAZENECA-2006UW11032

PATIENT
  Age: 46 Year
  Sex: Male
  Weight: 123.2 kg

DRUGS (4)
  1. SEROQUEL [Suspect]
     Indication: WEIGHT DECREASED
     Dosage: 100 MG
     Route: 048
     Dates: start: 20020101, end: 20060401
  2. ZYPREXA [Suspect]
  3. HALDOL [Concomitant]
     Dosage: 25 MG
  4. RISPERDAL [Concomitant]
     Dosage: 100 MG

REACTIONS (2)
  - DIABETES MELLITUS [None]
  - PANCREATITIS [None]
